FAERS Safety Report 20981108 (Version 2)
Quarter: 2022Q2

REPORT INFORMATION
  Report Type: Spontaneous
  Country: KR (occurrence: KR)
  Receive Date: 20220620
  Receipt Date: 20220621
  Transmission Date: 20220721
  Serious: Yes (Death)
  Sender: FDA-Public Use
  Company Number: KR-PFIZER INC-PV202200004254

PATIENT
  Age: 88 Year
  Sex: Male

DRUGS (3)
  1. IBRANCE [Suspect]
     Active Substance: PALBOCICLIB
     Indication: Breast cancer male
     Dosage: 1 DF, 1X/DAY
     Route: 048
     Dates: start: 202007
  2. LENARA [Concomitant]
     Dosage: 1 DF, 1X/DAY
     Route: 048
  3. TACENOL 8HOURS ER [Concomitant]
     Dosage: 1 DF, 3X/DAY
     Route: 048

REACTIONS (3)
  - Multiple organ dysfunction syndrome [Fatal]
  - Off label use [Unknown]
  - Product use issue [Unknown]

NARRATIVE: CASE EVENT DATE: 20200701
